FAERS Safety Report 10197267 (Version 2)
Quarter: 2014Q2

REPORT INFORMATION
  Report Type: Spontaneous
  Country: FR (occurrence: FR)
  Receive Date: 20140527
  Receipt Date: 20140603
  Transmission Date: 20141212
  Serious: Yes (Hospitalization)
  Sender: FDA-Public Use
  Company Number: FR-GLAXOSMITHKLINE-B0995616A

PATIENT
  Age: 12 Year
  Sex: Male
  Weight: 53.8 kg

DRUGS (3)
  1. LAMICTAL [Suspect]
     Indication: EPILEPSY
     Route: 048
     Dates: start: 20140417, end: 20140430
  2. MMR VACCINE [Concomitant]
     Indication: PROPHYLAXIS
     Dosage: 1INJ UNKNOWN
     Route: 065
  3. MMR VACCINE [Concomitant]
     Indication: PROPHYLAXIS
     Dosage: 1INJ SINGLE DOSE
     Route: 065

REACTIONS (10)
  - Drug reaction with eosinophilia and systemic symptoms [Recovered/Resolved]
  - Hepatocellular injury [Recovered/Resolved]
  - Pyrexia [Recovered/Resolved]
  - Rash morbilliform [Recovered/Resolved]
  - Pruritus [Recovered/Resolved]
  - Pharyngeal inflammation [Recovered/Resolved]
  - Lymphadenopathy [Recovered/Resolved]
  - Cheilitis [Recovered/Resolved]
  - Conjunctivitis [Recovered/Resolved]
  - Incorrect drug administration rate [Unknown]
